FAERS Safety Report 7187336-9 (Version None)
Quarter: 2010Q4

REPORT INFORMATION
  Report Type: 
  Country: None (occurrence: None)
  Receive Date: 20101222
  Receipt Date: 20101220
  Transmission Date: 20110411
  Serious: Yes (Disabling, Other)
  Sender: FDA-Public Use
  Company Number: US-MERCK-1011USA02589

PATIENT
  Age: 23 Year
  Sex: Male
  Weight: 77 kg

DRUGS (2)
  1. PROPECIA [Suspect]
     Indication: ANDROGENETIC ALOPECIA
     Route: 048
     Dates: start: 20100101, end: 20100101
  2. PROPECIA [Suspect]
     Route: 048
     Dates: start: 20080101, end: 20080101

REACTIONS (9)
  - AFFECTIVE DISORDER [None]
  - ANXIETY [None]
  - BLOOD FOLLICLE STIMULATING HORMONE DECREASED [None]
  - COGNITIVE DISORDER [None]
  - DELUSION [None]
  - DEPRESSION [None]
  - ERECTILE DYSFUNCTION [None]
  - INSOMNIA [None]
  - LIBIDO DECREASED [None]
